FAERS Safety Report 12297234 (Version 1)
Quarter: 2016Q2

REPORT INFORMATION
  Report Type: Spontaneous
  Country: US (occurrence: US)
  Receive Date: 20160422
  Receipt Date: 20160422
  Transmission Date: 20160815
  Serious: Yes (Hospitalization, Other)
  Sender: FDA-Public Use
  Company Number: ADR-2015-01222

PATIENT
  Age: 71 Year
  Sex: Male

DRUGS (2)
  1. MORPHINE [Suspect]
     Active Substance: MORPHINE
     Dosage: 49.22MCG/DAY
     Route: 037
  2. COMPOUNDED BACLOFEN [Suspect]
     Active Substance: BACLOFEN
     Route: 037

REACTIONS (2)
  - Drug withdrawal syndrome [Unknown]
  - Diarrhoea [Unknown]

NARRATIVE: CASE EVENT DATE: 201506
